FAERS Safety Report 10183323 (Version 1)
Quarter: 2014Q2

REPORT INFORMATION
  Report Type: Spontaneous
  Country: US (occurrence: US)
  Receive Date: 20140520
  Receipt Date: 20140520
  Transmission Date: 20141212
  Serious: Yes (Hospitalization)
  Sender: FDA-Public Use
  Company Number: US-BAYER-2014-074439

PATIENT
  Age: 26 Year
  Sex: Female

DRUGS (9)
  1. YAZ [Suspect]
  2. YASMIN [Suspect]
  3. PROPOXYPHENE NAPSYLATE [Concomitant]
  4. ACETAMINOPHEN [Concomitant]
  5. IPRATROPIUM [Concomitant]
  6. XOPENEX [Concomitant]
  7. ERYTHROMYCIN [Concomitant]
  8. PREDNISONE [Concomitant]
  9. PREVACID [Concomitant]

REACTIONS (2)
  - Deep vein thrombosis [None]
  - Pulmonary embolism [None]
